FAERS Safety Report 5043838-2 (Version None)
Quarter: 2006Q2

REPORT INFORMATION
  Report Type: 
  Country: None (occurrence: None)
  Receive Date: 20060601
  Receipt Date: 20060215
  Transmission Date: 20061013
  Serious: No
  Sender: FDA-Public Use
  Company Number: US200602003827

PATIENT
  Age: 45 Year
  Sex: Male

DRUGS (2)
  1. CYMBALTA [Suspect]
     Dosage: SEE IMAGE
     Route: 048
     Dates: start: 20060201, end: 20060201
  2. PAXIL [Concomitant]

REACTIONS (3)
  - ERYTHEMA OF EYELID [None]
  - EYE DISCHARGE [None]
  - FACE OEDEMA [None]
